FAERS Safety Report 9048043 (Version 1)
Quarter: 2013Q1

REPORT INFORMATION
  Report Type: Spontaneous
  Country: US (occurrence: US)
  Receive Date: 20130204
  Receipt Date: 20130204
  Transmission Date: 20140127
  Serious: No
  Sender: FDA-Public Use
  Company Number: US-AMGEN-USASP2013006106

PATIENT
  Sex: Female

DRUGS (1)
  1. ENBREL [Suspect]
     Indication: PSORIASIS
     Dosage: 50 MG, EVERY 10 DAYS
     Dates: start: 20070125, end: 201212

REACTIONS (3)
  - Asthma [Not Recovered/Not Resolved]
  - Psoriasis [Not Recovered/Not Resolved]
  - Pneumonia [Recovered/Resolved]
